FAERS Safety Report 9305369 (Version 2)
Quarter: 2013Q2

REPORT INFORMATION
  Report Type: Spontaneous
  Country: ES (occurrence: None)
  Receive Date: 20130520
  Receipt Date: 20130522
  Transmission Date: 20140414
  Serious: Yes (Hospitalization)
  Sender: FDA-Public Use
  Company Number: AG-2013-1098

PATIENT
  Age: 76 Year
  Sex: Male
  Weight: 73 kg

DRUGS (2)
  1. CHLORAMBUCIL [Suspect]
     Indication: CHRONIC LYMPHOCYTIC LEUKAEMIA
     Dosage: 16 MILLIGRAM (16 MILLIGRAM, DAY 1, DAY 15 AND EVERY 28 DAYS), ORAL
     Route: 048
     Dates: start: 20120904
  2. OBINUTUZUMAB (MONOCLONAL ANTIBODIES) (UNKNOWN) [Suspect]
     Indication: CHRONIC LYMPHOCYTIC LEUKAEMIA
     Dosage: UNKNOWN (1000 MILLIGRAM, UNKNOWN), INTRAVENOUS (NOT OTHERWISE SPECIFIED)
     Route: 042
     Dates: start: 20120909

REACTIONS (5)
  - Febrile neutropenia [None]
  - Nausea [None]
  - Vomiting [None]
  - Diarrhoea [None]
  - Gastroenteritis [None]
